FAERS Safety Report 25199708 (Version 2)
Quarter: 2025Q3

REPORT INFORMATION
  Report Type: Report from Study
  Country: EU (occurrence: EU)
  Receive Date: 20250415
  Receipt Date: 20250701
  Transmission Date: 20251021
  Serious: Yes (Other)
  Sender: AMGEN
  Company Number: EU-AMGEN-FRANI2025071487

PATIENT
  Sex: Male

DRUGS (2)
  1. TEPROTUMUMAB [Suspect]
     Active Substance: TEPROTUMUMAB
     Indication: Graves^ disease
     Route: 065
     Dates: start: 20240301
  2. TEPROTUMUMAB [Suspect]
     Active Substance: TEPROTUMUMAB
     Indication: Exophthalmos

REACTIONS (2)
  - Hyperthyroidism [Unknown]
  - Off label use [Unknown]

NARRATIVE: CASE EVENT DATE: 20240301
